FAERS Safety Report 21336832 (Version 1)
Quarter: 2022Q3

REPORT INFORMATION
  Report Type: Spontaneous
  Country: US (occurrence: None)
  Receive Date: 20220914
  Receipt Date: 20220914
  Transmission Date: 20221027
  Serious: Yes (Life-Threatening, Hospitalization)
  Sender: FDA-Public Use
  Company Number: None

PATIENT
  Age: 48 Year
  Sex: Female
  Weight: 102.6 kg

DRUGS (1)
  1. DEFINITY [Suspect]
     Active Substance: PERFLUTREN
     Dosage: OTHER FREQUENCY : 1;?
     Route: 040
     Dates: start: 20220908

REACTIONS (4)
  - Dyspnoea [None]
  - Cyanosis [None]
  - Asphyxia [None]
  - Cardio-respiratory arrest [None]

NARRATIVE: CASE EVENT DATE: 20220908
